FAERS Safety Report 5371092-0 (Version None)
Quarter: 2007Q2

REPORT INFORMATION
  Report Type: 
  Country: None (occurrence: None)
  Receive Date: 20070615
  Receipt Date: 20070313
  Transmission Date: 20071010
  Serious: Yes (Other)
  Sender: FDA-Public Use
  Company Number: 200711780US

PATIENT
  Age: 43 Year
  Sex: Female

DRUGS (7)
  1. LANTUS [Suspect]
     Indication: DIABETES MELLITUS INSULIN-DEPENDENT
     Dosage: 20 U/DAY
     Dates: start: 20070301
  2. LANTUS [Suspect]
     Indication: DIABETES MELLITUS INSULIN-DEPENDENT
     Dosage: 30 U QD A FEW MONTHS
     Dates: start: 20070301
  3. SIMVASTATIN [Concomitant]
  4. EZETIMIBE (VYTORIN) [Concomitant]
  5. INSULIN HUMAN (HUMANLIN REGULAR) [Concomitant]
  6. LISINOPRIL [Concomitant]
  7. ESCITALOPRAM OXALATE (LEXAPRO) [Concomitant]

REACTIONS (3)
  - BEDRIDDEN [None]
  - FEELING DRUNK [None]
  - HYPOGLYCAEMIA [None]
